FAERS Safety Report 5013769-2 (Version None)
Quarter: 2006Q2

REPORT INFORMATION
  Report Type: 
  Country: None (occurrence: None)
  Receive Date: 20060530
  Receipt Date: 20060130
  Transmission Date: 20061013
  Serious: Yes (Hospitalization)
  Sender: FDA-Public Use
  Company Number: FR-BRISTOL-MYERS SQUIBB COMPANY-13264908

PATIENT
  Age: 57 Year
  Sex: Female

DRUGS (6)
  1. BUSPAR [Suspect]
     Route: 048
  2. VASTAREL [Suspect]
  3. ATHYMIL [Suspect]
  4. BETAHISTINE [Suspect]
  5. LAMALINE [Suspect]
     Indication: BREAST CANCER
     Dates: start: 20050801
  6. FEMARA [Suspect]
     Indication: BREAST CANCER
     Dates: start: 20050801

REACTIONS (1)
  - PEMPHIGUS [None]
